FAERS Safety Report 4819711-9 (Version None)
Quarter: 2005Q4

REPORT INFORMATION
  Report Type: 
  Country: None (occurrence: None)
  Receive Date: 20051102
  Receipt Date: 20051013
  Transmission Date: 20060501
  Serious: Yes (Hospitalization, Disabling)
  Sender: FDA-Public Use
  Company Number: 408632

PATIENT
  Age: 23 Year
  Sex: Male
  Weight: 79.4 kg

DRUGS (2)
  1. ACCUTANE [Suspect]
     Indication: ACNE
     Dosage: ORAL
     Route: 048
     Dates: start: 19840615
  2. IBUPROFEN [Concomitant]

REACTIONS (88)
  - ALANINE AMINOTRANSFERASE INCREASED [None]
  - ANAEMIA POSTOPERATIVE [None]
  - ANAL FISSURE [None]
  - ANAL ULCER [None]
  - ANHEDONIA [None]
  - ANORECTAL DISORDER [None]
  - ANXIETY [None]
  - AORTIC BRUIT [None]
  - APHTHOUS STOMATITIS [None]
  - AREFLEXIA [None]
  - ARTHRALGIA [None]
  - ARTHRITIS [None]
  - ARTHROPATHY [None]
  - ASCITES [None]
  - ASTHENIA [None]
  - ATELECTASIS [None]
  - BACK PAIN [None]
  - BLEEDING TIME PROLONGED [None]
  - BLOOD ALBUMIN DECREASED [None]
  - BLOOD CALCIUM DECREASED [None]
  - BLOOD UREA INCREASED [None]
  - BLOOD URIC ACID DECREASED [None]
  - BONE INFARCTION [None]
  - CHEILITIS [None]
  - COLITIS [None]
  - COLITIS ULCERATIVE [None]
  - CROHN'S DISEASE [None]
  - DECREASED APPETITE [None]
  - DEPRESSED MOOD [None]
  - DIARRHOEA [None]
  - DIZZINESS [None]
  - DRUG INEFFECTIVE [None]
  - DRY SKIN [None]
  - EAR DISORDER [None]
  - EAR PAIN [None]
  - FATIGUE [None]
  - FLUID RETENTION [None]
  - GASTROINTESTINAL DISORDER [None]
  - GASTROINTESTINAL HAEMORRHAGE [None]
  - GENERALISED OEDEMA [None]
  - GOUT [None]
  - HEADACHE [None]
  - HEART RATE INCREASED [None]
  - HERPES VIRUS INFECTION [None]
  - HYPERGLYCAEMIA [None]
  - HYPERHIDROSIS [None]
  - HYPERTROPHY [None]
  - HYPOALBUMINAEMIA [None]
  - ILEUS [None]
  - INFLAMMATORY BOWEL DISEASE [None]
  - INFLUENZA LIKE ILLNESS [None]
  - INJURY [None]
  - IRRITABLE BOWEL SYNDROME [None]
  - JOINT DISLOCATION [None]
  - LEUKOCYTOSIS [None]
  - LIVER FUNCTION TEST ABNORMAL [None]
  - LUNG INFILTRATION [None]
  - MENISCUS LESION [None]
  - MUCOUS STOOLS [None]
  - MULTI-ORGAN DISORDER [None]
  - MUSCLE STRAIN [None]
  - NAUSEA [None]
  - NEPHROLITHIASIS [None]
  - ORTHOSTATIC HYPOTENSION [None]
  - PAIN [None]
  - PAIN IN JAW [None]
  - PCO2 INCREASED [None]
  - PERITONEAL EFFUSION [None]
  - PHARYNGITIS [None]
  - PHARYNGOLARYNGEAL PAIN [None]
  - PLATELET COUNT DECREASED [None]
  - PLEURAL EFFUSION [None]
  - PNEUMONIA [None]
  - POLYARTHRITIS [None]
  - POOR QUALITY DRUG ADMINISTERED [None]
  - POUCHITIS [None]
  - PROCTALGIA [None]
  - RASH [None]
  - RECTAL HAEMORRHAGE [None]
  - RENAL CYST [None]
  - RETCHING [None]
  - SPINAL COLUMN STENOSIS [None]
  - UPPER RESPIRATORY TRACT INFECTION [None]
  - VENTILATION/PERFUSION SCAN ABNORMAL [None]
  - VIRAL INFECTION [None]
  - VOMITING [None]
  - WEIGHT DECREASED [None]
  - X-RAY GASTROINTESTINAL TRACT ABNORMAL [None]
